FAERS Safety Report 23921496 (Version 2)
Quarter: 2024Q2

REPORT INFORMATION
  Report Type: Spontaneous
  Country: US (occurrence: US)
  Receive Date: 20240530
  Receipt Date: 20240611
  Transmission Date: 20240716
  Serious: Yes (Life-Threatening, Hospitalization)
  Sender: FDA-Public Use
  Company Number: US-TEVA-VS-3202075

PATIENT
  Age: 37 Year
  Sex: Female

DRUGS (4)
  1. ALPRAZOLAM [Suspect]
     Active Substance: ALPRAZOLAM
     Indication: Product used for unknown indication
     Dosage: UNCLEAR AMOUNT
     Route: 065
  2. ZOLPIDEM [Suspect]
     Active Substance: ZOLPIDEM TARTRATE
     Indication: Product used for unknown indication
     Dosage: UNCLEAR AMOUNT
     Route: 065
  3. AMITRIPTYLINE [Suspect]
     Active Substance: AMITRIPTYLINE
     Indication: Product used for unknown indication
     Dosage: OVERDOSE WITH AN ESTIMATED 3-MONTH SUPPLY OF AMITRIPTYLINE PILLS
     Route: 048
  4. METHADONE [Suspect]
     Active Substance: METHADONE HYDROCHLORIDE
     Indication: Product used for unknown indication
     Dosage: UNCLEAR AMOUNT
     Route: 065

REACTIONS (8)
  - Intentional overdose [Unknown]
  - Depressed level of consciousness [Unknown]
  - Hypotension [Unknown]
  - Electrocardiogram QRS complex prolonged [Recovering/Resolving]
  - Toxicity to various agents [Recovering/Resolving]
  - Ventricular dysfunction [Unknown]
  - Seizure [Unknown]
  - Bezoar [Recovering/Resolving]
